FAERS Safety Report 5444974-9 (Version None)
Quarter: 2007Q3

REPORT INFORMATION
  Report Type: 
  Country: None (occurrence: None)
  Receive Date: 20070904
  Receipt Date: 20070904
  Transmission Date: 20080115
  Serious: Yes (Other)
  Sender: FDA-Public Use
  Company Number: None

PATIENT
  Sex: Female
  Weight: 77.1115 kg

DRUGS (1)
  1. MIRENA [Suspect]
     Indication: CONTRACEPTION
     Dates: start: 20040401, end: 20070503

REACTIONS (7)
  - ACNE [None]
  - ARTHRALGIA [None]
  - AURA [None]
  - DISTURBANCE IN ATTENTION [None]
  - INSOMNIA [None]
  - PARTIAL SEIZURES [None]
  - WEIGHT INCREASED [None]
